FAERS Safety Report 5726582-5 (Version None)
Quarter: 2008Q2

REPORT INFORMATION
  Report Type: 
  Country: None (occurrence: None)
  Receive Date: 20080502
  Receipt Date: 20080423
  Transmission Date: 20081010
  Serious: Yes (Hospitalization, Other)
  Sender: FDA-Public Use
  Company Number: FR-GILEAD-2008-0016231

PATIENT
  Sex: Male

DRUGS (4)
  1. VIREAD [Suspect]
     Indication: HIV INFECTION
     Route: 048
     Dates: start: 20050409, end: 20080402
  2. RETROVIR [Concomitant]
     Indication: HIV INFECTION
     Dates: start: 20050409
  3. NORVIR [Concomitant]
     Indication: HIV INFECTION
     Dates: start: 20050409
  4. REYATAZ [Concomitant]
     Indication: HIV INFECTION
     Dates: start: 20050409

REACTIONS (5)
  - ASTHENIA [None]
  - COMPLEX REGIONAL PAIN SYNDROME [None]
  - FANCONI SYNDROME ACQUIRED [None]
  - FOOT FRACTURE [None]
  - HYPOVITAMINOSIS [None]
